FAERS Safety Report 6599463-5 (Version None)
Quarter: 2010Q1

REPORT INFORMATION
  Report Type: 
  Country: None (occurrence: None)
  Receive Date: 20100216
  Receipt Date: 20100129
  Transmission Date: 20100710
  Serious: Yes (Death)
  Sender: FDA-Public Use
  Company Number: SPV1-2010-00188

PATIENT
  Age: 44 Year
  Sex: Male

DRUGS (14)
  1. FOSRENOL [Suspect]
     Indication: HYPERPHOSPHATAEMIA
     Dosage: ORAL
     Route: 048
     Dates: start: 20090709, end: 20090902
  2. PHOSBLOCK (SEVELAMER HYDROCHLORIDE) [Concomitant]
  3. OXAROL (MAXACALCITOL) [Concomitant]
  4. HEPARIN [Concomitant]
  5. KINEDAK (EPALRESTAT) [Concomitant]
  6. LAC B (LACTOBACILLUS BIFIDUS, LYOPHILIZED) [Concomitant]
  7. BIOFERMIN (BACILLUS SUBTILIS, LACTOBACILLUS ACIDOPHILUS, STREPTOCOSSUS [Concomitant]
  8. ADALAT CC [Concomitant]
  9. DOXAZOSIN MESYLATE [Concomitant]
  10. HUMALOG [Concomitant]
  11. LANTUS [Concomitant]
  12. ALOSENN (ACHILLEA MILLEFOLIUM, RUBIA TINCTORIUM ROOT TINCTURE, SENNA A [Concomitant]
  13. SENNOSIDE (SENNOSIDE A+B) [Concomitant]
  14. STAYBAN (FLURBIPROFEN) [Concomitant]

REACTIONS (1)
  - CEREBRAL HAEMORRHAGE [None]
